FAERS Safety Report 22076164 (Version 1)
Quarter: 2023Q1

REPORT INFORMATION
  Report Type: Spontaneous
  Country: NL (occurrence: NL)
  Receive Date: 20230309
  Receipt Date: 20230309
  Transmission Date: 20230418
  Serious: Yes (Hospitalization)
  Sender: FDA-Public Use
  Company Number: None

PATIENT
  Sex: Male
  Weight: 80 kg

DRUGS (1)
  1. MIRTAZAPINE [Suspect]
     Active Substance: MIRTAZAPINE
     Indication: Tension headache
     Dosage: 30 MILLIGRAM DAILY;  BRAND NAME NOT SPECIFIED
     Route: 065
     Dates: start: 20220719, end: 20220723

REACTIONS (1)
  - Hypokalaemia [Recovered/Resolved]
